FAERS Safety Report 24694691 (Version 1)
Quarter: 2024Q4

REPORT INFORMATION
  Report Type: Report from Study
  Country: US (occurrence: US)
  Receive Date: 20241204
  Receipt Date: 20241204
  Transmission Date: 20250114
  Serious: Yes (Other)
  Sender: ABBVIE
  Company Number: US-ABBVIE-6030169

PATIENT
  Sex: Male

DRUGS (5)
  1. SKYRIZI [Suspect]
     Active Substance: RISANKIZUMAB-RZAA
     Indication: Crohn^s disease
     Dosage: FROM STRENGTH: 360 MG/ 2.4 ML, WEEK 12
     Route: 058
     Dates: start: 20230721, end: 202312
  2. SKYRIZI [Suspect]
     Active Substance: RISANKIZUMAB-RZAA
     Dosage: FROM STRENGTH: 360 MG/ 2.4 ML
     Route: 058
     Dates: start: 202409
  3. SKYRIZI [Suspect]
     Active Substance: RISANKIZUMAB-RZAA
     Indication: Crohn^s disease
     Dosage: DOSE: 600 MG/ 10ML, WEEK 0
     Route: 042
     Dates: start: 202304, end: 202304
  4. SKYRIZI [Suspect]
     Active Substance: RISANKIZUMAB-RZAA
     Indication: Crohn^s disease
     Dosage: DOSE: 600 MG/ 10ML, WEEK 4
     Route: 042
     Dates: start: 202305, end: 202305
  5. SKYRIZI [Suspect]
     Active Substance: RISANKIZUMAB-RZAA
     Indication: Crohn^s disease
     Dosage: DOSE: 600 MG/ 10ML, WEEK 8?DOSE ADMINISTERED ON 14 JUN 2024 OR 15 JUN 2024
     Route: 042
     Dates: start: 202306, end: 202306

REACTIONS (1)
  - Surgery [Unknown]
